FAERS Safety Report 7096427-2 (Version None)
Quarter: 2010Q4

REPORT INFORMATION
  Report Type: 
  Country: None (occurrence: None)
  Receive Date: 20101101
  Receipt Date: 20101018
  Transmission Date: 20110411
  Serious: Yes (Hospitalization)
  Sender: FDA-Public Use
  Company Number: 017516

PATIENT
  Sex: Female
  Weight: 80 kg

DRUGS (2)
  1. CIMZIA [Suspect]
     Indication: CROHN'S DISEASE
     Dosage: (400 MG 1X/4 WEEKS, NUMBER OF DOSES RECEIVED 68 (SUBCUTANEOUS)
     Route: 058
     Dates: start: 20041206, end: 20100716
  2. TRIAMCINOLONE [Concomitant]

REACTIONS (16)
  - ABDOMINAL WALL ABSCESS [None]
  - ANKLE FRACTURE [None]
  - BLOOD ALBUMIN DECREASED [None]
  - BLOOD ALKALINE PHOSPHATASE INCREASED [None]
  - C-REACTIVE PROTEIN INCREASED [None]
  - GAMMA-GLUTAMYLTRANSFERASE INCREASED [None]
  - INFECTION [None]
  - INFLAMMATION [None]
  - MONOCYTOSIS [None]
  - NEUTROPHILIA [None]
  - PLATELET COUNT INCREASED [None]
  - POST PROCEDURAL COMPLICATION [None]
  - POSTOPERATIVE ABSCESS [None]
  - RED BLOOD CELL SEDIMENTATION RATE INCREASED [None]
  - WHITE BLOOD CELL COUNT INCREASED [None]
  - WHITE BLOOD CELL MORPHOLOGY ABNORMAL [None]
